FAERS Safety Report 9242544 (Version 1)
Quarter: 2013Q2

REPORT INFORMATION
  Report Type: Report from Study
  Country: CA (occurrence: CA)
  Receive Date: 20130419
  Receipt Date: 20130419
  Transmission Date: 20140414
  Serious: Yes (Hospitalization)
  Sender: FDA-Public Use
  Company Number: CA-TEVA-363017USA

PATIENT
  Age: 63 Year
  Sex: Female
  Weight: 81 kg

DRUGS (1)
  1. TREANDA [Suspect]
     Indication: NON-HODGKIN^S LYMPHOMA
     Dosage: 8.1857  DAILY;
     Route: 042

REACTIONS (5)
  - Dysphagia [Recovered/Resolved]
  - Febrile neutropenia [Recovered/Resolved]
  - Chills [Recovered/Resolved]
  - Nausea [Recovered/Resolved]
  - Vomiting [Recovered/Resolved]
